FAERS Safety Report 25230344 (Version 2)
Quarter: 2025Q2

REPORT INFORMATION
  Report Type: Spontaneous
  Country: US (occurrence: US)
  Receive Date: 20250423
  Receipt Date: 20250605
  Transmission Date: 20250717
  Serious: No
  Sender: VERTEX
  Company Number: US-VERTEX PHARMACEUTICALS-2025-006358

PATIENT
  Sex: Male

DRUGS (1)
  1. ALYFTREK [Suspect]
     Active Substance: DEUTIVACAFTOR\TEZACAFTOR\VANZACAFTOR
     Indication: Cystic fibrosis
     Dosage: 10MG VANZACAFTOR/ 50MG TEZACAFTOR/ 125MG DEUTIVACAFTOR; 2 TABS ONCE DAILY
     Route: 048
     Dates: start: 20250303, end: 20250410

REACTIONS (1)
  - Hallucinations, mixed [Recovered/Resolved]

NARRATIVE: CASE EVENT DATE: 20250410
